FAERS Safety Report 10349828 (Version 1)
Quarter: 2014Q3

REPORT INFORMATION
  Report Type: Spontaneous
  Country: NL (occurrence: NL)
  Receive Date: 20140730
  Receipt Date: 20140730
  Transmission Date: 20150326
  Serious: Yes (Death)
  Sender: FDA-Public Use
  Company Number: PHHY2014NL091708

PATIENT
  Age: 84 Year
  Sex: Female

DRUGS (6)
  1. ALENDRONATE [Concomitant]
     Active Substance: ALENDRONATE SODIUM
     Dosage: 70 MG, UNK
  2. FLUTICASONE [Concomitant]
     Active Substance: FLUTICASONE\FLUTICASONE PROPIONATE
     Route: 055
  3. DICLOFENAC [Concomitant]
     Active Substance: DICLOFENAC
  4. CHOLECALCIFEROL [Concomitant]
     Active Substance: CHOLECALCIFEROL
     Dosage: 800 IU, UNK
  5. SODIUM CROMOGLYCATE [Concomitant]
  6. IMATINIB [Suspect]
     Active Substance: IMATINIB
     Indication: MASTOCYTIC LEUKAEMIA

REACTIONS (6)
  - Wheezing [Fatal]
  - Hypotension [Fatal]
  - Dyspnoea [Fatal]
  - Pulmonary oedema [Fatal]
  - Anaphylactic shock [Fatal]
  - Drug ineffective [Unknown]
